FAERS Safety Report 11614660 (Version 1)
Quarter: 2015Q4

REPORT INFORMATION
  Report Type: Spontaneous
  Country: US (occurrence: US)
  Receive Date: 20151009
  Receipt Date: 20151009
  Transmission Date: 20160304
  Serious: Yes (Life-Threatening)
  Sender: FDA-Public Use
  Company Number: US-HOSPIRA-3030323

PATIENT
  Age: 49 Year
  Sex: Female
  Weight: 84 kg

DRUGS (10)
  1. CALCIUM FOLINATE [Suspect]
     Active Substance: LEUCOVORIN CALCIUM
     Indication: COLON CANCER
     Dosage: OVER 2 HOURS ON DAY 1
     Route: 042
     Dates: start: 20150126
  2. 5-FU                               /00098801/ [Suspect]
     Active Substance: FLUOROURACIL
     Indication: ADENOCARCINOMA OF COLON
     Dosage: OVER 46-48 HOURS ON DAY 1
     Route: 041
     Dates: start: 20150126
  3. CELECOXIB. [Suspect]
     Active Substance: CELECOXIB
     Indication: ADENOCARCINOMA OF COLON
     Route: 048
  4. CALCIUM FOLINATE [Suspect]
     Active Substance: LEUCOVORIN CALCIUM
     Indication: COLON CANCER
     Dosage: OVER 2 HOURS ON DAY 1
     Route: 042
     Dates: start: 20150126
  5. CELECOXIB. [Suspect]
     Active Substance: CELECOXIB
     Indication: COLON CANCER
     Route: 048
  6. 5-FU                               /00098801/ [Suspect]
     Active Substance: FLUOROURACIL
     Indication: ADENOCARCINOMA OF COLON
     Dosage: OVER 46-48 HOURS ON DAY 1
     Route: 041
     Dates: start: 20150126
  7. 5-FU                               /00098801/ [Suspect]
     Active Substance: FLUOROURACIL
     Indication: COLON CANCER
     Dosage: OVER 46-48 HOURS ON DAY 1
     Route: 041
     Dates: start: 20150126
  8. 5-FU                               /00098801/ [Suspect]
     Active Substance: FLUOROURACIL
     Indication: COLON CANCER
     Dosage: OVER 46-48 HOURS ON DAY 1
     Route: 041
     Dates: start: 20150126
  9. ELOXATIN [Suspect]
     Active Substance: OXALIPLATIN
     Indication: ADENOCARCINOMA OF COLON
     Dosage: OVER 2 HOURS ON DAY 1
     Route: 042
     Dates: start: 20150126
  10. ELOXATIN [Suspect]
     Active Substance: OXALIPLATIN
     Indication: COLON CANCER
     Dosage: OVER 2 HOURS ON DAY 1
     Route: 042
     Dates: start: 20150126

REACTIONS (1)
  - Embolism [Recovering/Resolving]

NARRATIVE: CASE EVENT DATE: 20150416
